FAERS Safety Report 16068438 (Version 1)
Quarter: 2019Q1

REPORT INFORMATION
  Report Type: Report from Study
  Country: US (occurrence: US)
  Receive Date: 20190313
  Receipt Date: 20190313
  Transmission Date: 20190418
  Serious: Yes (Hospitalization)
  Sender: FDA-Public Use
  Company Number: US-ACTELION-A-US2018-181618

PATIENT
  Age: 56 Year
  Sex: Female
  Weight: 68.03 kg

DRUGS (19)
  1. OPSUMIT [Suspect]
     Active Substance: MACITENTAN
     Indication: PULMONARY ARTERIAL HYPERTENSION
     Dosage: 10 MG, QD
     Route: 048
     Dates: start: 20181030
  2. VELETRI [Suspect]
     Active Substance: EPOPROSTENOL
     Dosage: 23 NG/KG, PER MIN
     Route: 042
  3. VELETRI [Suspect]
     Active Substance: EPOPROSTENOL
     Dosage: 32 NG/KG, PER MIN
     Route: 042
  4. JARDIANCE [Concomitant]
     Active Substance: EMPAGLIFLOZIN
     Dosage: 25 MG, UNK
     Dates: start: 2017
  5. ZOLOFT [Concomitant]
     Active Substance: SERTRALINE HYDROCHLORIDE
     Dosage: 25 MG, QD
  6. ASPIRIN. [Concomitant]
     Active Substance: ASPIRIN
     Dosage: 81 MG, QD
  7. VELETRI [Suspect]
     Active Substance: EPOPROSTENOL
     Indication: PULMONARY ARTERIAL HYPERTENSION
     Dosage: DOSE 21, RATE 75; TITRATE UP TO 4 DAYS
     Route: 042
     Dates: start: 20180716
  8. CARISOPRODOL. [Concomitant]
     Active Substance: CARISOPRODOL
     Dosage: 350 MG, UNK
     Dates: start: 2018
  9. VELETRI [Suspect]
     Active Substance: EPOPROSTENOL
     Dosage: 37 NG/KG, PER MIN
     Route: 042
  10. SERTRALINE [Concomitant]
     Active Substance: SERTRALINE HYDROCHLORIDE
     Dosage: 25 MG, QD
  11. PREDNISONE. [Concomitant]
     Active Substance: PREDNISONE
     Dosage: 5 MG, UNK
     Dates: start: 2016
  12. OMEPRAZOLE. [Concomitant]
     Active Substance: OMEPRAZOLE
     Dosage: 40 MG, UNK
  13. MULTIVITAMIN [Concomitant]
     Active Substance: VITAMINS
     Dosage: UNK MG, QD
  14. TORSEMIDE. [Concomitant]
     Active Substance: TORSEMIDE
     Dosage: 5 MG, 3 TABS DAILY
     Dates: start: 20181013
  15. CELLCEPT [Concomitant]
     Active Substance: MYCOPHENOLATE MOFETIL\MYCOPHENOLATE MOFETIL HYDROCHLORIDE
     Dosage: 1000 MG IN AM, 500 MG IN PM
     Dates: start: 2016
  16. MORPHINE [Concomitant]
     Active Substance: MORPHINE
     Dosage: 15 MG, UNK
     Dates: start: 2018
  17. OXYCODONE [Concomitant]
     Active Substance: OXYCODONE
     Dosage: 10/325 MG 1 TAB BID PRN
     Dates: start: 2018
  18. ZINC. [Concomitant]
     Active Substance: ZINC
     Dosage: 50 MG, UNK
     Dates: start: 2018
  19. LYRICA [Concomitant]
     Active Substance: PREGABALIN
     Dosage: 100 MG, 2 CAPS TID
     Dates: start: 2018

REACTIONS (13)
  - Dyspnoea exertional [Not Recovered/Not Resolved]
  - Malaise [Unknown]
  - Weight decreased [Unknown]
  - Pain [Unknown]
  - Oxygen saturation abnormal [Unknown]
  - Complication associated with device [Recovered/Resolved]
  - Pain in jaw [Unknown]
  - Vascular device infection [Unknown]
  - Catheter management [Unknown]
  - Fluid retention [Not Recovered/Not Resolved]
  - Lip swelling [Not Recovered/Not Resolved]
  - Decreased appetite [Not Recovered/Not Resolved]
  - Abnormal loss of weight [Not Recovered/Not Resolved]

NARRATIVE: CASE EVENT DATE: 2018
